FAERS Safety Report 15249802 (Version 2)
Quarter: 2018Q4

REPORT INFORMATION
  Report Type: Spontaneous
  Country: US (occurrence: US)
  Receive Date: 20180807
  Receipt Date: 20181107
  Transmission Date: 20190204
  Serious: No
  Sender: FDA-Public Use
  Company Number: US-PFIZER INC-2018020538

PATIENT
  Age: 62 Year
  Sex: Female
  Weight: 119 kg

DRUGS (2)
  1. LYRICA [Suspect]
     Active Substance: PREGABALIN
     Indication: FIBROMYALGIA
  2. LYRICA [Suspect]
     Active Substance: PREGABALIN
     Indication: OSTEOARTHRITIS
     Dosage: 150 MG, 3X/DAY
     Route: 048

REACTIONS (7)
  - Anxiety [Recovering/Resolving]
  - Weight decreased [Not Recovered/Not Resolved]
  - Depression [Recovering/Resolving]
  - Panic reaction [Recovering/Resolving]
  - Asthma [Recovering/Resolving]
  - Emotional distress [Recovering/Resolving]
  - Condition aggravated [Recovering/Resolving]
